FAERS Safety Report 10691009 (Version 3)
Quarter: 2016Q3

REPORT INFORMATION
  Report Type: Spontaneous
  Country: US (occurrence: US)
  Receive Date: 20150105
  Receipt Date: 20160805
  Transmission Date: 20161109
  Serious: No
  Sender: FDA-Public Use
  Company Number: US-PFIZER INC-2014361769

PATIENT
  Age: 30 Year
  Sex: Male
  Weight: 82 kg

DRUGS (34)
  1. CORTISPORIN OTIC [Concomitant]
     Dosage: 4 GTT, 4X/DAY(NEOMYCIN: 3.5 MG/ML, POLYMYXIN B SULF: 10,000 UNIT/ML, HC:1%)
  2. SENNA [Concomitant]
     Active Substance: SENNA LEAF\SENNOSIDES\SENNOSIDES A AND B
     Dosage: 17.2 MG, DAILY
  3. VITAMIN C [Concomitant]
     Active Substance: ASCORBIC ACID
     Dosage: 500 MG, 2X/DAY
     Route: 048
  4. VITAMIN C [Concomitant]
     Active Substance: ASCORBIC ACID
     Dosage: 1000 MG, 2X/DAY
     Route: 048
  5. MOTRIN [Concomitant]
     Active Substance: IBUPROFEN
     Dosage: 200 MG, AS NEEDED (1-2 TABS EVERY 4-6 HOURS)
     Route: 048
  6. HIPREX [Concomitant]
     Active Substance: METHENAMINE HIPPURATE
     Dosage: 1 G, 2X/DAY
     Route: 048
  7. NYSTATIN. [Concomitant]
     Active Substance: NYSTATIN
     Dosage: UNK, AS NEEDED(DAILY)
  8. TYLENOL EXTRA STRENGTH [Concomitant]
     Active Substance: ACETAMINOPHEN
     Dosage: 500 MG, AS NEEDED (4000MG IN 24 HRS. 1-2 TABS EVERY 8 HOURS)
     Route: 048
  9. PROCARDIA [Concomitant]
     Active Substance: NIFEDIPINE
     Dosage: 10 MG, AS NEEDED(DAILY)
     Route: 048
  10. GAS-X [Concomitant]
     Active Substance: DIMETHICONE
     Dosage: 80 MG, 3X/DAY(IF NEEDED; MAX DOSE: 500 MG PER 24 HRS CHEW 1 TAB WITH MEALS)
     Route: 048
  11. VIAGRA [Suspect]
     Active Substance: SILDENAFIL CITRATE
     Indication: ERECTILE DYSFUNCTION
     Dosage: 10 MG, AS NEEDED
     Route: 048
     Dates: start: 2012
  12. DULCOLAX NOS [Concomitant]
     Active Substance: BISACODYL OR DOCUSATE SODIUM
     Dosage: 10 MG, ALTERNATE DAY (INSERT 1 SUPPOSITORY RECTALLY EVERY OTHER DAY)
     Route: 054
  13. VITAMIN D3 [Concomitant]
     Active Substance: CHOLECALCIFEROL
     Dosage: 2000 IU, 1X/DAY
     Route: 048
  14. HYDROCORTISONE ACETATE. [Concomitant]
     Active Substance: HYDROCORTISONE ACETATE
     Dosage: UNK, AS NEEDED (INSERT 1 SUPPOSITORY RECTALLY DAILY AS NEEDED)
     Route: 054
  15. ADVIL [Concomitant]
     Active Substance: IBUPROFEN
     Dosage: 200 MG, AS NEEDED(1-2 TABS EVERY 4-6 HOURS)
     Route: 048
  16. MELATONIN [Concomitant]
     Active Substance: MELATONIN
     Dosage: 3 MG, AS NEEDED(AT BEDTIME)
     Route: 048
  17. PRAMOXINE/ZINC OXIDE [Concomitant]
     Dosage: UNK, AS NEEDED(DAILY)
     Route: 061
  18. ALBUTEROL SULFATE. [Concomitant]
     Active Substance: ALBUTEROL SULFATE
     Dosage: 2.5 MG, AS NEEDED(FOUR TIMES DAILY)
     Route: 048
  19. CRANBERRY EXTRACT [Concomitant]
     Active Substance: CRANBERRY JUICE
     Dosage: 500 MG, 2X/DAY
     Route: 048
  20. OXYTROL [Concomitant]
     Active Substance: OXYBUTYNIN
     Dosage: UNK(APPLY 2 PATCHES ON DRY, CLEAN, HAIRLESS SKIN. EVERY SUNDAY AND WEDNESDAY)
  21. MIRALAX [Concomitant]
     Active Substance: POLYETHYLENE GLYCOL 3350
     Dosage: 17 G, AS NEEDED(17 GRAMS MIXED IN 8 OZ WATER DAILY)
  22. MYLANTA GAS [Concomitant]
     Dosage: 80 MG, 3X/DAY(IF NEEDED;MAX DOSE: 500 MG PER 24 HRS CHEW 1 TAB WITH MEALS)
     Route: 048
  23. HYTRIN [Concomitant]
     Active Substance: TERAZOSIN HYDROCHLORIDE
     Dosage: 5 MG, 1X/DAY(AT BEDTIME)
     Route: 048
  24. VIAGRA [Suspect]
     Active Substance: SILDENAFIL CITRATE
     Dosage: 100 MG, DAILY(30MIN TO 4 HOURS BEFORE SEXUAL ACTIVITY. MAX 100MG/24HR)
     Route: 048
  25. KLONOPIN [Concomitant]
     Active Substance: CLONAZEPAM
     Dosage: 0.5 MG, 1X/DAY(AT BEDTIME)
     Route: 048
  26. ADALAT [Concomitant]
     Active Substance: NIFEDIPINE
     Dosage: 10 MG, AS NEEDED(DAILY)
     Route: 048
  27. EFFEXOR [Concomitant]
     Active Substance: VENLAFAXINE HYDROCHLORIDE
     Dosage: 300 MG, 1X/DAY(2 CAPSULES, EVERY MORNING)
     Route: 048
  28. LIORESAL [Concomitant]
     Active Substance: BACLOFEN
     Dosage: 10 MG, 3X/DAY(IF NEEDED )
     Route: 048
  29. CALTRATE [Concomitant]
     Active Substance: CALCIUM CARBONATE
     Dosage: 1 DF, 2X/DAY (600 MG (1,500 MG))
     Route: 048
  30. COLACE [Concomitant]
     Active Substance: DOCUSATE SODIUM
     Dosage: 100 MG, 2X/DAY
     Route: 048
  31. GLYCOLAX [Concomitant]
     Active Substance: POLYETHYLENE GLYCOL 3350
     Dosage: 17 G, AS NEEDED(17 GRAMS MIXED IN 8 OZ WATER DAILY)
     Route: 048
  32. PROVENTIL [Concomitant]
     Active Substance: ALBUTEROL
     Dosage: 3 ML, UNK(EVERY 4 HOURS IF NEEDED)
     Route: 055
  33. CARBAMIDE PEROXIDE [Concomitant]
     Active Substance: CARBAMIDE PEROXIDE
     Dosage: 10 GTT, 2X/DAY (6.5%)
     Route: 001
  34. EMLA [Concomitant]
     Active Substance: LIDOCAINE\PRILOCAINE
     Dosage: UNK (2.5-2.5 % APPLY TOPICALLY TO RECTUM BEFORE BOWEL PROGRAM )
     Route: 061

REACTIONS (2)
  - Prescribed underdose [Unknown]
  - Drug effect incomplete [Unknown]

NARRATIVE: CASE EVENT DATE: 2012
